FAERS Safety Report 9038992 (Version 1)
Quarter: 2013Q1

REPORT INFORMATION
  Report Type: Spontaneous
  Country: US (occurrence: None)
  Receive Date: 20130122
  Receipt Date: 20130122
  Transmission Date: 20140127
  Serious: Yes (Other)
  Sender: FDA-Public Use
  Company Number: None

PATIENT
  Sex: Female
  Weight: 81.65 kg

DRUGS (1)
  1. SEROQUEL [Suspect]
     Indication: BIPOLAR II DISORDER
     Dosage: 600 MG 1 A DAY PO
     Route: 048

REACTIONS (10)
  - Incorrect dose administered [None]
  - Dyspnoea [None]
  - Loss of consciousness [None]
  - Heart rate increased [None]
  - Dyskinesia [None]
  - Muscle spasms [None]
  - Medication error [None]
  - Dysphagia [None]
  - Cardiac arrest [None]
  - Circumstance or information capable of leading to medication error [None]
